FAERS Safety Report 4283248-9 (Version None)
Quarter: 2004Q1

REPORT INFORMATION
  Report Type: 
  Country: None (occurrence: None)
  Receive Date: 20040129
  Receipt Date: 20040119
  Transmission Date: 20041129
  Serious: No
  Sender: FDA-Public Use
  Company Number: 04P-167-0247840-00

PATIENT
  Age: 75 Year
  Sex: Female
  Weight: 56 kg

DRUGS (2)
  1. HUMIRA [Suspect]
     Indication: RHEUMATOID ARTHRITIS
     Dosage: 80 MG, 1 IN 2 WK, SUBCUTENOUS
     Route: 058
     Dates: start: 20031016, end: 20031229
  2. CELECOXIB [Concomitant]

REACTIONS (1)
  - VASCULITIS [None]
